FAERS Safety Report 9135811 (Version 1)
Quarter: 2013Q1

REPORT INFORMATION
  Report Type: Spontaneous
  Country: US (occurrence: US)
  Receive Date: 20130304
  Receipt Date: 20130304
  Transmission Date: 20140127
  Serious: No
  Sender: FDA-Public Use
  Company Number: US-ABBOTT-12P-163-0920975-00

PATIENT
  Sex: Male

DRUGS (7)
  1. ANDROGEL 1% [Suspect]
     Indication: BLOOD TESTOSTERONE DECREASED
     Route: 061
     Dates: start: 200911, end: 200912
  2. PRADAXA [Concomitant]
     Indication: ATRIAL FIBRILLATION
     Dosage: NOT REPORTED
  3. LEVOTHYROXINE [Concomitant]
     Indication: HYPOTHYROIDISM
     Dosage: NOT REPORTED
  4. METOPROLOL [Concomitant]
     Indication: PRODUCT USED FOR UNKNOWN INDICATION
     Dosage: NOT REPORTED
  5. CO Q10 [Concomitant]
     Indication: SUPPLEMENTATION THERAPY
     Dosage: NOT REPORTED
  6. B COMPLEX [Concomitant]
     Indication: VITAMIN SUPPLEMENTATION
     Dosage: NOT REPORTED
  7. HAWTHORN ROOT [Concomitant]
     Indication: SUPPLEMENTATION THERAPY
     Dosage: NOT REPORTED

REACTIONS (2)
  - Drug ineffective [Not Recovered/Not Resolved]
  - Blood testosterone decreased [Not Recovered/Not Resolved]
